FAERS Safety Report 22956276 (Version 4)
Quarter: 2024Q1

REPORT INFORMATION
  Report Type: Report from Study
  Country: DE (occurrence: DE)
  Receive Date: 20230919
  Receipt Date: 20240126
  Transmission Date: 20240409
  Serious: Yes (Other)
  Sender: FDA-Public Use
  Company Number: DE-TAKEDA-2023TUS089606

PATIENT
  Age: 66 Year
  Sex: Female
  Weight: 64 kg

DRUGS (19)
  1. PARATHYROID HORMONE [Suspect]
     Active Substance: PARATHYROID HORMONE
     Indication: Hypoparathyroidism
     Dosage: 50 MICROGRAM, QD
     Route: 058
     Dates: start: 20200629, end: 20200817
  2. PARATHYROID HORMONE [Suspect]
     Active Substance: PARATHYROID HORMONE
     Indication: Hypoparathyroidism
     Dosage: 50 MICROGRAM, QD
     Route: 058
     Dates: start: 20200629, end: 20200817
  3. PARATHYROID HORMONE [Suspect]
     Active Substance: PARATHYROID HORMONE
     Indication: Hypoparathyroidism
     Dosage: 50 MICROGRAM, QD
     Route: 058
     Dates: start: 20200629, end: 20200817
  4. PARATHYROID HORMONE [Suspect]
     Active Substance: PARATHYROID HORMONE
     Dosage: 25 MICROGRAM, QD
     Route: 058
     Dates: start: 20200819
  5. PARATHYROID HORMONE [Suspect]
     Active Substance: PARATHYROID HORMONE
     Dosage: 25 MICROGRAM, QD
     Route: 058
     Dates: start: 20200819
  6. PARATHYROID HORMONE [Suspect]
     Active Substance: PARATHYROID HORMONE
     Dosage: 25 MICROGRAM, QD
     Route: 058
     Dates: start: 20200819
  7. BISOPROLOL [Concomitant]
     Active Substance: BISOPROLOL\BISOPROLOL FUMARATE
     Indication: Coronary artery disease
     Dosage: UNK
     Route: 048
  8. EZETIMIBE [Concomitant]
     Active Substance: EZETIMIBE
     Indication: Hyperlipidaemia
     Dosage: UNK
     Route: 048
  9. ASPIRIN [Concomitant]
     Active Substance: ASPIRIN
     Indication: Myocardial infarction
     Dosage: UNK
     Route: 048
     Dates: start: 2017
  10. EUTHYROX [Concomitant]
     Active Substance: LEVOTHYROXINE SODIUM
     Indication: Post procedural complication
     Dosage: UNK
     Route: 048
     Dates: start: 20200618
  11. BUDESONIDE [Concomitant]
     Active Substance: BUDESONIDE
     Indication: Bronchial obstruction
     Dosage: UNK
     Route: 055
  12. ESTRIOL [Concomitant]
     Active Substance: ESTRIOL
     Indication: Menopausal symptoms
     Dosage: UNK
     Route: 065
     Dates: start: 2020
  13. SALBUTAMOL HEMISULFATE [Concomitant]
     Indication: Dyspnoea
     Dosage: UNK
     Route: 055
     Dates: start: 20210302
  14. SALBUTAMOL HEMISULFATE [Concomitant]
     Indication: Asthma
  15. HYDROCHLOROTHIAZIDE [Concomitant]
     Active Substance: HYDROCHLOROTHIAZIDE
     Indication: Hypercalciuria
     Dosage: UNK
     Route: 048
     Dates: start: 202211, end: 20230914
  16. CALCIUM CARBONATE [Concomitant]
     Active Substance: CALCIUM CARBONATE
     Dosage: 1500.0 MILLIGRAM, BID
     Route: 065
     Dates: start: 20220310
  17. VITAMIN D [Concomitant]
     Active Substance: VITAMIN D NOS
     Dosage: 10000.0 INTERNATIONAL UNIT, 1/WEEK
     Route: 065
     Dates: start: 202103
  18. MAGNESIUM [Concomitant]
     Active Substance: MAGNESIUM
     Dosage: 300 MILLIGRAM, QD
     Route: 065
     Dates: start: 202302, end: 202309
  19. LEVOTHYROXINE SODIUM [Concomitant]
     Active Substance: LEVOTHYROXINE SODIUM
     Indication: Post procedural complication
     Dosage: UNK
     Route: 048
     Dates: start: 1996, end: 20200617

REACTIONS (3)
  - Seizure [Recovered/Resolved]
  - Hypokalaemia [Recovered/Resolved]
  - Hypercalcaemia [Not Recovered/Not Resolved]

NARRATIVE: CASE EVENT DATE: 20230824
